FAERS Safety Report 5739010-0 (Version None)
Quarter: 2008Q2

REPORT INFORMATION
  Report Type: 
  Country: None (occurrence: None)
  Receive Date: 20080515
  Receipt Date: 20080506
  Transmission Date: 20081010
  Serious: Yes (Other)
  Sender: FDA-Public Use
  Company Number: US-JNJFOC-20080401044

PATIENT
  Sex: Female
  Weight: 65.32 kg

DRUGS (6)
  1. DOXIL [Suspect]
     Dosage: CYCLE 3
     Route: 042
  2. DOXIL [Suspect]
     Dosage: CYCLE 2
     Route: 042
  3. DOXIL [Suspect]
     Indication: SARCOMA
     Dosage: CYCLE 1
     Route: 042
  4. VITAMIN CAP [Concomitant]
     Route: 065
  5. CALCIUM [Concomitant]
     Route: 065
  6. VITAMIN B COMPLEX CAP [Concomitant]
     Route: 065

REACTIONS (9)
  - FORMICATION [None]
  - OEDEMA PERIPHERAL [None]
  - PAIN [None]
  - PAIN IN EXTREMITY [None]
  - PALMAR-PLANTAR ERYTHRODYSAESTHESIA SYNDROME [None]
  - PLANTAR ERYTHEMA [None]
  - PRURITUS [None]
  - RASH [None]
  - SENSORY DISTURBANCE [None]
